FAERS Safety Report 24558438 (Version 2)
Quarter: 2024Q4

REPORT INFORMATION
  Report Type: Spontaneous
  Country: UY (occurrence: UY)
  Receive Date: 20241029
  Receipt Date: 20241226
  Transmission Date: 20250115
  Serious: Yes (Other)
  Sender: AMGEN
  Company Number: UY-PFIZER INC-202400287526

PATIENT
  Age: 68 Year
  Sex: Female

DRUGS (1)
  1. ENBREL [Suspect]
     Active Substance: ETANERCEPT
     Indication: Rheumatoid arthritis
     Dosage: 50 MILLIGRAM, QWK
     Route: 065
     Dates: start: 20180403, end: 20241218

REACTIONS (9)
  - Hip fracture [Recovering/Resolving]
  - Fall [Recovering/Resolving]
  - Cerebrovascular accident [Recovering/Resolving]
  - Brain injury [Recovering/Resolving]
  - Hypoaesthesia [Recovering/Resolving]
  - Tremor [Recovering/Resolving]
  - Bone pain [Recovering/Resolving]
  - Weight decreased [Recovering/Resolving]
  - Anaemia [Recovering/Resolving]

NARRATIVE: CASE EVENT DATE: 20240101
